FAERS Safety Report 11024322 (Version 1)
Quarter: 2015Q2

REPORT INFORMATION
  Report Type: Report from Study
  Country: US (occurrence: US)
  Receive Date: 20150414
  Receipt Date: 20150414
  Transmission Date: 20150821
  Serious: No
  Sender: FDA-Public Use
  Company Number: US-AMGEN-USASL2015034589

PATIENT
  Age: 62 Year
  Sex: Female

DRUGS (2)
  1. SIMPONI [Concomitant]
     Active Substance: GOLIMUMAB
     Dosage: UNK
  2. ENBREL [Suspect]
     Active Substance: ETANERCEPT
     Indication: RHEUMATOID ARTHRITIS
     Dosage: 40 MG, QWK
     Route: 065
     Dates: start: 20140520, end: 201503

REACTIONS (6)
  - Cough [Recovered/Resolved]
  - Bronchitis [Recovered/Resolved]
  - No therapeutic response [Not Recovered/Not Resolved]
  - Back pain [Recovered/Resolved]
  - Malaise [Recovered/Resolved]
  - Arthritis [Not Recovered/Not Resolved]

NARRATIVE: CASE EVENT DATE: 20140520
